FAERS Safety Report 20751539 (Version 1)
Quarter: 2022Q2

REPORT INFORMATION
  Report Type: Spontaneous
  Country: US (occurrence: None)
  Receive Date: 20220426
  Receipt Date: 20220426
  Transmission Date: 20220721
  Serious: No
  Sender: FDA-Public Use
  Company Number: None

PATIENT

DRUGS (2)
  1. FLOVENT HFA [Suspect]
     Active Substance: FLUTICASONE PROPIONATE
     Route: 055
  2. FLUTICASONE [Suspect]
     Active Substance: FLUTICASONE
     Route: 045

REACTIONS (4)
  - Product selection error [None]
  - Transcription medication error [None]
  - Intercepted product dispensing error [None]
  - Product confusion [None]
